FAERS Safety Report 7099771 (Version 6)
Quarter: 2013Q4

REPORT INFORMATION
  Report Type: Report from Study
  Country: JP (occurrence: JP)
  Receive Date: 20090828
  Receipt Date: 20131011
  Transmission Date: 20140711
  Serious: Yes (Hospitalization)
  Sender: FDA-Public Use
  Company Number: JP-BAYER-200913051BYL

PATIENT
  Age: 79 Year
  Sex: Female
  Weight: 33.6 kg

DRUGS (12)
  1. NEXAVAR [Suspect]
     Indication: HEPATOCELLULAR CARCINOMA
     Route: 048
     Dates: start: 20090815, end: 20090825
  2. LIVACT [Concomitant]
     Indication: BLOOD CREATININE INCREASED
     Dosage: AFTER DINNER
     Route: 048
  3. LIVACT [Concomitant]
     Indication: BLOOD CREATININE INCREASED
     Dosage: 1 DF (DAILY DOSE), , ORAL
     Route: 048
     Dates: start: 20090821
  4. GASTER D [Concomitant]
     Route: 048
  5. BLOSTAR M [Concomitant]
     Route: 048
  6. FUROSEMIDE [Concomitant]
     Route: 048
  7. ALDACTONE A [Concomitant]
     Dosage: AFTER LUNCH
     Route: 048
  8. ITOROL [Concomitant]
     Dosage: AFTER BREAKFAST AND DINNER
     Route: 048
  9. SIGMART [Concomitant]
     Dosage: AFTER BREAKFAST AND DINNER
     Route: 048
  10. MYSLEE [Concomitant]
     Route: 048
  11. ALOSENN [Concomitant]
     Route: 048
  12. MYOCOR [Concomitant]
     Route: 055

REACTIONS (6)
  - Tumour lysis syndrome [Recovering/Resolving]
  - Renal failure acute [Recovering/Resolving]
  - Hyperuricaemia [Recovering/Resolving]
  - Blood creatinine increased [Recovering/Resolving]
  - Amylase increased [Recovering/Resolving]
  - Hyperammonaemia [Recovered/Resolved]
